FAERS Safety Report 7233302-4 (Version None)
Quarter: 2011Q1

REPORT INFORMATION
  Report Type: 
  Country: None (occurrence: None)
  Receive Date: 20110119
  Receipt Date: 20100119
  Transmission Date: 20110831
  Serious: Yes (Other)
  Sender: FDA-Public Use
  Company Number: BR-ROCHE-676271

PATIENT
  Sex: Female
  Weight: 87.4 kg

DRUGS (9)
  1. BONIVA [Suspect]
     Route: 048
     Dates: start: 20100101
  2. PURAN T4 [Concomitant]
     Indication: THYROID DISORDER
     Route: 048
  3. ARTROLIVE [Concomitant]
  4. AMARYL [Concomitant]
     Route: 048
  5. BONIVA [Suspect]
     Dosage: OTHER INDICATION: OSTEOPENIA
     Route: 048
     Dates: start: 20060101
  6. CALCIUM [Concomitant]
     Indication: OSTEOPENIA
  7. GALVUS [Concomitant]
     Route: 048
  8. CAPTOPRIL [Concomitant]
     Indication: HYPERTENSION
     Route: 048
  9. INDERAL [Concomitant]
     Indication: HYPERTENSION
     Route: 048

REACTIONS (3)
  - FEMUR FRACTURE [None]
  - FALL [None]
  - OSTEOARTHRITIS [None]
